FAERS Safety Report 9117435 (Version 4)
Quarter: 2013Q4

REPORT INFORMATION
  Report Type: Spontaneous
  Country: US (occurrence: US)
  Receive Date: 20130225
  Receipt Date: 20131003
  Transmission Date: 20140711
  Serious: Yes (Death, Hospitalization, Other)
  Sender: FDA-Public Use
  Company Number: US-BIOGENIDEC-2013BI015732

PATIENT
  Age: 38 Year
  Sex: Female
  Weight: 62 kg

DRUGS (9)
  1. TYSABRI [Suspect]
     Indication: MULTIPLE SCLEROSIS
     Route: 042
     Dates: start: 20050103
  2. TYSABRI [Suspect]
     Indication: MULTIPLE SCLEROSIS
     Route: 042
     Dates: start: 20061220, end: 20130110
  3. AVONEX [Concomitant]
     Dates: start: 200612
  4. BACLOFEN [Concomitant]
     Route: 048
  5. ESTRADIOL [Concomitant]
     Route: 048
  6. HYDROCODONE [Concomitant]
     Route: 048
  7. ACETAMINOPHEN [Concomitant]
     Route: 048
  8. LYRICA [Concomitant]
     Route: 048
  9. VITAMIN D [Concomitant]
     Route: 048

REACTIONS (2)
  - Progressive multifocal leukoencephalopathy [Fatal]
  - Immune reconstitution inflammatory syndrome [Not Recovered/Not Resolved]
